FAERS Safety Report 17376738 (Version 1)
Quarter: 2020Q1

REPORT INFORMATION
  Report Type: Spontaneous
  Country: IT (occurrence: IT)
  Receive Date: 20200206
  Receipt Date: 20200206
  Transmission Date: 20200409
  Serious: Yes (Hospitalization)
  Sender: FDA-Public Use
  Company Number: NVSC2020IT022946

PATIENT
  Age: 43 Year
  Sex: Female

DRUGS (4)
  1. FLUNOX [Suspect]
     Active Substance: FLURAZEPAM HYDROCHLORIDE
     Indication: PRODUCT USED FOR UNKNOWN INDICATION
     Dosage: 10 DF (TOTAL)
     Route: 065
     Dates: start: 20181219, end: 20181219
  2. PAROXETINA DOC GENERICI [Suspect]
     Active Substance: PAROXETINE HYDROCHLORIDE
     Indication: PRODUCT USED FOR UNKNOWN INDICATION
     Dosage: 28 DF (TOTAL)
     Route: 065
     Dates: start: 20181219, end: 20181219
  3. ALPRAZOLAM. [Suspect]
     Active Substance: ALPRAZOLAM
     Indication: PRODUCT USED FOR UNKNOWN INDICATION
     Dosage: 10 DF (TOTAL)
     Route: 065
     Dates: start: 20181219, end: 20181219
  4. TRIAPIN [Suspect]
     Active Substance: FELODIPINE\RAMIPRIL
     Indication: PRODUCT USED FOR UNKNOWN INDICATION
     Dosage: 28 DF (TOTAL) 5/5 MG/MG
     Route: 065
     Dates: start: 20181219, end: 20181219

REACTIONS (2)
  - Mydriasis [Recovered/Resolved]
  - Sopor [Recovered/Resolved]

NARRATIVE: CASE EVENT DATE: 20181219
